FAERS Safety Report 17739485 (Version 2)
Quarter: 2020Q2

REPORT INFORMATION
  Report Type: Spontaneous
  Country: NZ (occurrence: NZ)
  Receive Date: 20200504
  Receipt Date: 20200512
  Transmission Date: 20200714
  Serious: Yes (Other)
  Sender: FDA-Public Use
  Company Number: NZ-CELLTRION INC.-2020NZ021982

PATIENT

DRUGS (1)
  1. INFLIXIMAB PFIZER (UNKNOWN) [Suspect]
     Active Substance: INFLIXIMAB
     Dosage: INITIAL 0,2 AND 6 WEEKS THEN 8 WEEKLY INFUSIONS FOR 4 MONTHS

REACTIONS (2)
  - Therapeutic product effect incomplete [Unknown]
  - Neuropathy peripheral [Unknown]
